FAERS Safety Report 11278703 (Version 3)
Quarter: 2015Q3

REPORT INFORMATION
  Report Type: Report from Study
  Country: US (occurrence: US)
  Receive Date: 20150717
  Receipt Date: 20150730
  Transmission Date: 20151125
  Serious: Yes (Hospitalization)
  Sender: FDA-Public Use
  Company Number: US-BIOGENIDEC-2015BI098148

PATIENT
  Age: 58 Year
  Sex: Female

DRUGS (1)
  1. PLEGRIDY [Suspect]
     Active Substance: PEGINTERFERON BETA-1A
     Indication: MULTIPLE SCLEROSIS
     Dates: start: 20150222, end: 201504

REACTIONS (15)
  - Road traffic accident [Recovered/Resolved]
  - Lower limb fracture [Recovered/Resolved with Sequelae]
  - Foot fracture [Recovered/Resolved]
  - Cardiac arrest [Recovered/Resolved]
  - Gait disturbance [Not Recovered/Not Resolved]
  - Influenza like illness [Recovered/Resolved]
  - Pelvic fracture [Recovered/Resolved]
  - Gastrointestinal disorder [Recovered/Resolved]
  - Laceration [Recovered/Resolved]
  - Pyrexia [Recovered/Resolved]
  - Splenic rupture [Recovered/Resolved]
  - Rib fracture [Recovered/Resolved]
  - Humerus fracture [Recovered/Resolved]
  - Radial nerve injury [Not Recovered/Not Resolved]
  - Wound [Recovered/Resolved]

NARRATIVE: CASE EVENT DATE: 20150413
